FAERS Safety Report 7758698-6 (Version None)
Quarter: 2011Q3

REPORT INFORMATION
  Report Type: 
  Country: None (occurrence: None)
  Receive Date: 20110919
  Receipt Date: 20100514
  Transmission Date: 20111222
  Serious: No
  Sender: FDA-Public Use
  Company Number: US-BAYER-201023364NA

PATIENT
  Sex: Female

DRUGS (1)
  1. MIRENA [Suspect]
     Dosage: 20 ?G/D, CONT
     Route: 015
     Dates: start: 20090204

REACTIONS (8)
  - MALAISE [None]
  - DEVICE EXPULSION [None]
  - ABDOMINAL PAIN LOWER [None]
  - COITAL BLEEDING [None]
  - VAGINAL HAEMORRHAGE [None]
  - VAGINAL DISCHARGE [None]
  - PROCEDURAL PAIN [None]
  - ABDOMINAL DISCOMFORT [None]
